FAERS Safety Report 16564763 (Version 1)
Quarter: 2019Q3

REPORT INFORMATION
  Report Type: Spontaneous
  Country: US (occurrence: US)
  Receive Date: 20190711
  Receipt Date: 20190711
  Transmission Date: 20191004
  Serious: No
  Sender: FDA-Public Use
  Company Number: None

PATIENT
  Age: 30 Year
  Sex: Male
  Weight: 87.75 kg

DRUGS (1)
  1. BACLOFEN. [Suspect]
     Active Substance: BACLOFEN
     Indication: MUSCLE DISORDER
     Dates: end: 20190501

REACTIONS (6)
  - Mouth haemorrhage [None]
  - Compulsive cheek biting [None]
  - Tongue movement disturbance [None]
  - Dyskinesia [None]
  - Tongue haemorrhage [None]
  - Withdrawal syndrome [None]

NARRATIVE: CASE EVENT DATE: 20190501
